FAERS Safety Report 5119956-7 (Version None)
Quarter: 2006Q3

REPORT INFORMATION
  Report Type: 
  Country: None (occurrence: None)
  Receive Date: 20060929
  Receipt Date: 20060918
  Transmission Date: 20061208
  Serious: Yes (Other)
  Sender: FDA-Public Use
  Company Number: 2006113045

PATIENT
  Age: 69 Year
  Sex: Female
  Weight: 67 kg

DRUGS (3)
  1. LYRICA [Suspect]
     Indication: NEURALGIA
     Dosage: 150 MG (75 MG, 2 IN 1 D), ORAL
     Route: 048
     Dates: start: 20060601, end: 20060701
  2. DIUZINE (AMILORIDE HYDROCHLORIDE, HYDROCHLOROTHIAZIDE) [Concomitant]
  3. LORAZEPAM [Concomitant]

REACTIONS (4)
  - COORDINATION ABNORMAL [None]
  - GAIT DISTURBANCE [None]
  - HYPERAESTHESIA [None]
  - HYPOAESTHESIA [None]
